FAERS Safety Report 11971836 (Version 2)
Quarter: 2016Q1

REPORT INFORMATION
  Report Type: Report from Study
  Country: HR (occurrence: HR)
  Receive Date: 20160128
  Receipt Date: 20160218
  Transmission Date: 20160526
  Serious: Yes (Hospitalization, Other)
  Sender: FDA-Public Use
  Company Number: HR-ASTELLAS-2016US002890

PATIENT
  Sex: Male

DRUGS (14)
  1. EBRANTIL                           /00631801/ [Concomitant]
     Active Substance: URAPIDIL
     Indication: PRODUCT USED FOR UNKNOWN INDICATION
     Dosage: 90 MG, DAILY DOSE
     Route: 048
     Dates: start: 2014
  2. VALCYTE [Concomitant]
     Active Substance: VALGANCICLOVIR HYDROCHLORIDE
     Indication: PRODUCT USED FOR UNKNOWN INDICATION
     Dosage: 225 MG,  DAILY DOSE
     Route: 048
     Dates: start: 2014
  3. SINERSUL [Concomitant]
     Active Substance: SULFAMETHOXAZOLE\TRIMETHOPRIM
     Indication: PRODUCT USED FOR UNKNOWN INDICATION
     Dosage: 240 MG,  DAILY DOSE
     Route: 048
     Dates: start: 2014
  4. CONTROLOC                          /01263201/ [Concomitant]
     Indication: PRODUCT USED FOR UNKNOWN INDICATION
     Dosage: 40 MG, DAILY DOSE
     Route: 048
     Dates: start: 2014
  5. ALDIZEM                            /00489701/ [Concomitant]
     Indication: PRODUCT USED FOR UNKNOWN INDICATION
     Dosage: 180 MG,  DAILY DOSE
     Route: 048
     Dates: start: 2014
  6. PHYSIOTENS [Concomitant]
     Active Substance: MOXONIDINE
     Indication: PRODUCT USED FOR UNKNOWN INDICATION
     Dosage: 0.4 MG, DAILY DOSE
     Route: 048
     Dates: start: 2014
  7. CELLCEPT [Suspect]
     Active Substance: MYCOPHENOLATE MOFETIL\MYCOPHENOLATE MOFETIL HYDROCHLORIDE
     Dosage: 1500 MG, DAILY DOSE
     Route: 065
     Dates: start: 20141030
  8. TACROLIMUS. [Suspect]
     Active Substance: TACROLIMUS
     Indication: IMMUNOSUPPRESSANT DRUG THERAPY
     Route: 065
     Dates: start: 20140820
  9. DECORTIN [Suspect]
     Active Substance: PREDNISONE
     Indication: IMMUNOSUPPRESSANT DRUG THERAPY
     Dosage: 10 MG, DAILY DOSE
     Route: 065
     Dates: start: 20140820
  10. TACROLIMUS. [Suspect]
     Active Substance: TACROLIMUS
     Dosage: 0.75 MG, TWICE DAILY
     Route: 065
     Dates: start: 20141030
  11. CONCOR [Concomitant]
     Active Substance: BISOPROLOL FUMARATE
     Indication: PRODUCT USED FOR UNKNOWN INDICATION
     Dosage: 2.5 MG,  DAILY DOSE
     Route: 048
     Dates: start: 2014
  12. OMNIC [Concomitant]
     Active Substance: TAMSULOSIN HYDROCHLORIDE
     Indication: PRODUCT USED FOR UNKNOWN INDICATION
     Dosage: 0.4 MG,  DAILY DOSE
     Route: 048
     Dates: start: 2014
  13. CELLCEPT [Suspect]
     Active Substance: MYCOPHENOLATE MOFETIL\MYCOPHENOLATE MOFETIL HYDROCHLORIDE
     Indication: IMMUNOSUPPRESSANT DRUG THERAPY
     Dosage: 3000 MG, DAILY DOSE
     Route: 065
     Dates: start: 20140820
  14. DIFLUCAN [Concomitant]
     Active Substance: FLUCONAZOLE
     Indication: PRODUCT USED FOR UNKNOWN INDICATION
     Dosage: 4X1 ML, DAILY DOSE
     Route: 048
     Dates: start: 2014

REACTIONS (1)
  - Graft loss [Recovered/Resolved with Sequelae]

NARRATIVE: CASE EVENT DATE: 20150107
